FAERS Safety Report 5028610-1 (Version None)
Quarter: 2006Q2

REPORT INFORMATION
  Report Type: 
  Country: None (occurrence: None)
  Receive Date: 20060501
  Receipt Date: 20060302
  Transmission Date: 20061013
  Serious: No
  Sender: FDA-Public Use
  Company Number: 200611792US

PATIENT
  Age: 25 Year
  Sex: Female
  Weight: 54.54 kg

DRUGS (1)
  1. KETEK [Suspect]
     Indication: SINUS DISORDER
     Dates: start: 20060101, end: 20060101

REACTIONS (4)
  - ASTIGMATISM [None]
  - DIPLOPIA [None]
  - HEADACHE [None]
  - VISION BLURRED [None]
